FAERS Safety Report 16215045 (Version 2)
Quarter: 2019Q2

REPORT INFORMATION
  Report Type: Spontaneous
  Country: HU (occurrence: HU)
  Receive Date: 20190418
  Receipt Date: 20190507
  Transmission Date: 20190711
  Serious: Yes (Death, Hospitalization, Other)
  Sender: FDA-Public Use
  Company Number: HU-009507513-1904HUN006840

PATIENT
  Age: 57 Year
  Sex: Male

DRUGS (10)
  1. TAMSULOSIN HYDROCHLORIDE. [Concomitant]
     Active Substance: TAMSULOSIN HYDROCHLORIDE
     Indication: BENIGN PROSTATIC HYPERPLASIA
     Dosage: 0.4 MILLIGRAM, IN THE EVENINGS
     Route: 048
  2. FLUTICASONE PROPIONATE (+) SALMETEROL XINAFOATE [Concomitant]
     Active Substance: FLUTICASONE PROPIONATE\SALMETEROL XINAFOATE
     Indication: CHRONIC OBSTRUCTIVE PULMONARY DISEASE
     Dosage: 1 PUFF,2 TIMES, ORAL INHALATION
     Route: 055
  3. CALCIUM (UNSPECIFIED) (+) CHOLECALCIFEROL (+) ZOLEDRONIC ACID [Concomitant]
     Indication: METASTASES TO BONE
     Dosage: EVERY THIRD WEEK
     Route: 042
  4. KEYTRUDA [Suspect]
     Active Substance: PEMBROLIZUMAB
     Indication: LUNG NEOPLASM MALIGNANT
     Dosage: AT THE DOSE OF 150 MG AND CONTINUED WITH 200 MG IN EVERY THIRD WEEK
     Dates: start: 20190211, end: 20190211
  5. KEYTRUDA [Suspect]
     Active Substance: PEMBROLIZUMAB
     Dosage: AT THE DOSE OF 150 MG AND CONTINUED WITH 200 MG IN EVERY THIRD WEEK
     Dates: start: 20190304, end: 20190410
  6. BERODUAL [Concomitant]
     Active Substance: FENOTEROL HYDROBROMIDE\IPRATROPIUM BROMIDE
     Indication: CHRONIC OBSTRUCTIVE PULMONARY DISEASE
     Dosage: 8 DROPS 3TIMES AND   2ML PHYSIOLOGICAL SALINE, ORAL INHALATION
     Route: 055
  7. GLYCOPYRRONIUM [Concomitant]
     Active Substance: GLYCOPYRRONIUM
     Indication: CHRONIC OBSTRUCTIVE PULMONARY DISEASE
     Dosage: 1 CAPSULE, ONCE DAILY
     Route: 048
  8. NEBIVOLOL. [Concomitant]
     Active Substance: NEBIVOLOL
     Indication: HYPERTENSION
     Dosage: 2.5 MILLIGRAM 2 TIMES
     Route: 048
  9. ALPRAZOLAM. [Concomitant]
     Active Substance: ALPRAZOLAM
     Indication: SEDATIVE THERAPY
     Dosage: 0.25MG, 2 TIMES PER DAY/0.5MF
     Route: 048
  10. FENTANYL. [Concomitant]
     Active Substance: FENTANYL
     Indication: CANCER PAIN
     Dosage: 25MCG/72H, AS NEEDED
     Route: 062

REACTIONS (8)
  - Immune-mediated hepatitis [Recovered/Resolved]
  - Respiratory failure [Recovered/Resolved]
  - Hepatic enzyme increased [Recovered/Resolved]
  - Renal failure [Unknown]
  - Death [Fatal]
  - Cholecystitis acute [Recovered/Resolved]
  - Hyperkalaemia [Unknown]
  - Adverse event [Unknown]

NARRATIVE: CASE EVENT DATE: 2019
